FAERS Safety Report 8484599-4 (Version None)
Quarter: 2012Q3

REPORT INFORMATION
  Report Type: 
  Country: None (occurrence: None)
  Receive Date: 20120703
  Receipt Date: 20120517
  Transmission Date: 20120928
  Serious: No
  Sender: FDA-Public Use
  Company Number: US-TEVA-338556USA

PATIENT
  Age: 82 Year
  Sex: Male

DRUGS (3)
  1. WARFARIN SODIUM [Concomitant]
     Indication: ATRIAL FIBRILLATION
     Route: 048
     Dates: end: 20110101
  2. PRADAXA [Concomitant]
     Dosage: 7200 MILLIGRAM;
     Route: 048
  3. NUVIGIL [Suspect]
     Indication: SOMNOLENCE
     Route: 048

REACTIONS (3)
  - DRUG EFFECT INCREASED [None]
  - INSOMNIA [None]
  - TERMINAL INSOMNIA [None]
